FAERS Safety Report 6187565-7 (Version None)
Quarter: 2009Q2

REPORT INFORMATION
  Report Type: 
  Country: None (occurrence: None)
  Receive Date: 20090508
  Receipt Date: 20090501
  Transmission Date: 20091009
  Serious: Yes (Death, Hospitalization)
  Sender: FDA-Public Use
  Company Number: 09FR001138

PATIENT
  Age: 69 Year
  Sex: Female

DRUGS (5)
  1. ACETAMINOPHEN [Suspect]
     Dosage: ORAL
     Route: 048
  2. STRONTIUM RANELATE (STRONTIUM RANELATE) [Suspect]
     Indication: OSTEOPOROSIS
  3. CHOLECALCIFEROL () [Suspect]
  4. DICLOFENAC (DICLOFENAC) [Suspect]
  5. CALCIUM (CALCIUM CARBONATE, CALCIUM LACTOGLUCONATE) [Suspect]
     Dosage: ORAL
     Route: 048

REACTIONS (9)
  - ACUTE HEPATIC FAILURE [None]
  - CONFUSIONAL STATE [None]
  - DRUG RASH WITH EOSINOPHILIA AND SYSTEMIC SYMPTOMS [None]
  - ENANTHEMA [None]
  - LEUKOCYTOSIS [None]
  - LIVER INJURY [None]
  - RENAL DISORDER [None]
  - RENAL IMPAIRMENT [None]
  - STOMATITIS [None]
